FAERS Safety Report 5392324-9 (Version None)
Quarter: 2007Q3

REPORT INFORMATION
  Report Type: 
  Country: None (occurrence: None)
  Receive Date: 20070720
  Receipt Date: 20070718
  Transmission Date: 20080115
  Serious: Yes (Life-Threatening, Hospitalization)
  Sender: FDA-Public Use
  Company Number: PHEH2007US10160

PATIENT
  Age: 49 Year
  Sex: Male
  Weight: 96.145 kg

DRUGS (1)
  1. TEKTURNA [Suspect]
     Dosage: 150 MG, QD
     Route: 048

REACTIONS (3)
  - ECHOCARDIOGRAM [None]
  - PERICARDITIS [None]
  - ULTRASOUND CHEST [None]
